FAERS Safety Report 6868134 (Version 2)
Quarter: 2013Q2

REPORT INFORMATION
  Report Type: Spontaneous
  Country: US (occurrence: US)
  Receive Date: 20081229
  Receipt Date: 20130528
  Transmission Date: 20140414
  Serious: Yes (Death, Hospitalization, Other)
  Sender: FDA-Public Use
  Company Number: US-PFIZER INC-2008154112

PATIENT
  Age: 58 Year
  Sex: Female

DRUGS (5)
  1. ALPRAZOLAM [Suspect]
     Dosage: 0.25MG X480
     Route: 048
     Dates: start: 2007
  2. ACETAMINOPHEN/DIPHENHYDRAMINE [Suspect]
     Dosage: 385 DF, UNK
     Route: 048
     Dates: start: 2007
  3. ZOLPIDEM [Suspect]
     Dosage: 10 MG X 90
     Route: 048
     Dates: start: 2007
  4. RISPERIDONE [Suspect]
     Dosage: 0.5MG X 9
     Route: 048
     Dates: start: 2007
  5. FLUVOXAMINE [Suspect]
     Dosage: 100MG X134
     Route: 048
     Dates: start: 2007

REACTIONS (4)
  - Substance abuse [Fatal]
  - Completed suicide [Fatal]
  - Metabolic acidosis [Fatal]
  - Coma [Fatal]
